FAERS Safety Report 6719953-1 (Version None)
Quarter: 2010Q2

REPORT INFORMATION
  Report Type: 
  Country: None (occurrence: None)
  Receive Date: 20100511
  Receipt Date: 20100505
  Transmission Date: 20101027
  Serious: Yes (Hospitalization)
  Sender: FDA-Public Use
  Company Number: US-ELI_LILLY_AND_COMPANY-US201005001208

PATIENT
  Age: 90 Year
  Sex: Female

DRUGS (5)
  1. HUMULIN 70/30 [Suspect]
     Indication: DIABETES MELLITUS
     Dates: start: 20080101
  2. DARVON [Concomitant]
  3. SYNTHROID [Concomitant]
  4. ASPIRIN [Concomitant]
  5. XYLITOL [Concomitant]

REACTIONS (6)
  - ARTHRITIS [None]
  - HIP FRACTURE [None]
  - HYPOGLYCAEMIA [None]
  - JOINT INJURY [None]
  - LIMB INJURY [None]
  - MEMORY IMPAIRMENT [None]
